FAERS Safety Report 20430399 (Version 1)
Quarter: 2022Q1

REPORT INFORMATION
  Report Type: Report from Study
  Country: FR (occurrence: FR)
  Receive Date: 20220204
  Receipt Date: 20220204
  Transmission Date: 20220423
  Serious: Yes (Hospitalization)
  Sender: FDA-Public Use
  Company Number: FR-SERVIER-S20007058

PATIENT

DRUGS (10)
  1. ONCASPAR [Suspect]
     Active Substance: PEGASPARGASE
     Indication: Acute lymphocytic leukaemia
     Dosage: 1575 IU, D12
     Route: 042
     Dates: start: 20200211, end: 20200211
  2. TN UNSPECIFIED [Concomitant]
     Indication: Acute lymphocytic leukaemia
     Dosage: 3300 MG, D8, D22, D36
     Route: 042
     Dates: start: 20200525, end: 20200625
  3. TN UNSPECIFIED [Concomitant]
     Dosage: 12 MG, D9, D23, D31
     Route: 037
     Dates: start: 20200526, end: 20200626
  4. TN UNSPECIFIED [Concomitant]
     Indication: Acute lymphocytic leukaemia
     Dosage: 38 MG, D1 TO D28
     Route: 048
     Dates: start: 20200322
  5. TN UNSPECIFIED [Concomitant]
     Dosage: 16 MG, D1 TO D56
     Route: 048
     Dates: start: 20200516
  6. TN UNSPECIFIED [Concomitant]
     Indication: Acute lymphocytic leukaemia
     Dosage: 0.9 MG, DAY 8, 15, 22 AND 29
     Route: 042
     Dates: start: 20200207, end: 20200228
  7. TN UNSPECIFIED [Concomitant]
     Indication: Acute lymphocytic leukaemia
     Dosage: 6.2 MG, D8 TO D34
     Route: 048
     Dates: start: 20200207, end: 20200305
  8. TN UNSPECIFIED [Concomitant]
     Indication: Acute lymphocytic leukaemia
     Dosage: 19 MG, D8, D15, D22 AND D29
     Route: 042
     Dates: start: 20200207, end: 20200228
  9. TN UNSPECIFIED [Concomitant]
     Indication: Acute lymphocytic leukaemia
     Dosage: 49 MG, D3-D6, D10-D13 AND D17-D20
     Route: 042
     Dates: start: 20200324, end: 20200417
  10. TN UNSPECIFIED [Concomitant]
     Indication: Acute lymphocytic leukaemia
     Dosage: 660 MG, D1 TO D29
     Route: 042
     Dates: start: 20200323, end: 20200419

REACTIONS (1)
  - Generalised tonic-clonic seizure [Recovered/Resolved]

NARRATIVE: CASE EVENT DATE: 20200701
